FAERS Safety Report 25474543 (Version 1)
Quarter: 2025Q2

REPORT INFORMATION
  Report Type: Spontaneous
  Country: NO (occurrence: NO)
  Receive Date: 20250624
  Receipt Date: 20250624
  Transmission Date: 20250717
  Serious: Yes (Other)
  Sender: NOVO NORDISK
  Company Number: None

PATIENT
  Age: 25 Year
  Sex: Female

DRUGS (5)
  1. WEGOVY [Suspect]
     Active Substance: SEMAGLUTIDE
     Indication: Overweight
     Route: 058
     Dates: start: 20231030
  2. TOBRASONE [DEXAMETHASONE;TOBRAMYCIN] [Concomitant]
     Indication: Infection prophylaxis
  3. TOBRASONE [DEXAMETHASONE;TOBRAMYCIN] [Concomitant]
     Indication: Postoperative care
  4. ATACAND [Concomitant]
     Active Substance: CANDESARTAN CILEXETIL
     Indication: Headache
  5. LAMICTAL [Concomitant]
     Active Substance: LAMOTRIGINE
     Indication: Headache

REACTIONS (1)
  - Keratitis interstitial [Recovering/Resolving]

NARRATIVE: CASE EVENT DATE: 20250318
